FAERS Safety Report 12979272 (Version 3)
Quarter: 2017Q1

REPORT INFORMATION
  Report Type: Spontaneous
  Country: US (occurrence: US)
  Receive Date: 20161128
  Receipt Date: 20170209
  Transmission Date: 20170428
  Serious: Yes (Other)
  Sender: FDA-Public Use
  Company Number: US-PFIZER INC-2016503826

PATIENT
  Age: 39 Year
  Sex: Male
  Weight: 109 kg

DRUGS (5)
  1. HCTZ [Concomitant]
     Active Substance: HYDROCHLOROTHIAZIDE
     Dosage: 25 MG, DAILY
     Dates: start: 2008
  2. ATENOLOL. [Concomitant]
     Active Substance: ATENOLOL
     Indication: BLOOD PRESSURE MEASUREMENT
     Dosage: 50 MG, DAILY
     Route: 048
     Dates: start: 2008
  3. ATENOLOL. [Concomitant]
     Active Substance: ATENOLOL
     Dosage: 50 MG, 1X/DAY
     Route: 048
  4. XYNTHA [Suspect]
     Active Substance: ANTIHEMOPHILIC FACTOR, HUMAN RECOMBINANT RESIDUES 743-1636 DELETED
     Indication: FACTOR VIII DEFICIENCY
     Dosage: 3000 IU, 3 TIMES PER WEEK AND EVERY 12 HOURS AS NEEDED
  5. XYNTHA [Suspect]
     Active Substance: ANTIHEMOPHILIC FACTOR, HUMAN RECOMBINANT RESIDUES 743-1636 DELETED
     Indication: PROPHYLAXIS

REACTIONS (4)
  - Gout [Recovered/Resolved]
  - Product use issue [Unknown]
  - Haemorrhage [Recovered/Resolved]
  - Drug ineffective [Recovered/Resolved]

NARRATIVE: CASE EVENT DATE: 20161118
